FAERS Safety Report 7865488-2 (Version None)
Quarter: 2011Q4

REPORT INFORMATION
  Report Type: 
  Country: None (occurrence: None)
  Receive Date: 20111028
  Receipt Date: 20110119
  Transmission Date: 20120403
  Serious: No
  Sender: FDA-Public Use
  Company Number: US-GLAXOSMITHKLINE-A0903742A

PATIENT
  Sex: Male

DRUGS (2)
  1. ADVAIR DISKUS 100/50 [Suspect]
     Indication: PRODUCT USED FOR UNKNOWN INDICATION
     Route: 055
  2. ADVAIR DISKUS 100/50 [Suspect]
     Route: 055

REACTIONS (5)
  - TOOTH INJURY [None]
  - PRODUCT QUALITY ISSUE [None]
  - TOOTH EROSION [None]
  - TEETH BRITTLE [None]
  - TOOTH DISORDER [None]
